FAERS Safety Report 4961921-4 (Version None)
Quarter: 2006Q2

REPORT INFORMATION
  Report Type: 
  Country: None (occurrence: None)
  Receive Date: 20060404
  Receipt Date: 20050616
  Transmission Date: 20061013
  Serious: Yes (Hospitalization, Disabling, Other)
  Sender: FDA-Public Use
  Company Number: US-MERCK-0506USA02710

PATIENT
  Age: 46 Year
  Sex: Male
  Weight: 82 kg

DRUGS (3)
  1. VIOXX [Suspect]
     Indication: BACK PAIN
     Route: 048
     Dates: start: 20011001, end: 20040101
  2. VIOXX [Suspect]
     Route: 048
     Dates: start: 20011001, end: 20040101
  3. HYDROCODONE BITARTRATE [Concomitant]
     Route: 065

REACTIONS (17)
  - ANAEMIA [None]
  - ANGINA PECTORIS [None]
  - ANGINA UNSTABLE [None]
  - ARTERIAL SPASM [None]
  - ARTERIOSCLEROSIS CORONARY ARTERY [None]
  - BACK DISORDER [None]
  - CARDIAC DISORDER [None]
  - CHEST PAIN [None]
  - CHOLECYSTITIS [None]
  - CHOLELITHIASIS [None]
  - CORONARY ARTERY RESTENOSIS [None]
  - CORONARY ARTERY STENOSIS [None]
  - EMOTIONAL DISORDER [None]
  - HYPERTENSION [None]
  - INTERVERTEBRAL DISC DEGENERATION [None]
  - MYOCARDIAL INFARCTION [None]
  - ROAD TRAFFIC ACCIDENT [None]
